FAERS Safety Report 5579247-7 (Version None)
Quarter: 2007Q4

REPORT INFORMATION
  Report Type: 
  Country: None (occurrence: None)
  Receive Date: 20071228
  Receipt Date: 20071217
  Transmission Date: 20080405
  Serious: Yes (Hospitalization)
  Sender: FDA-Public Use
  Company Number: 2007BI006929

PATIENT
  Age: 61 Year
  Sex: Female

DRUGS (10)
  1. AVONEX [Suspect]
     Indication: MULTIPLE SCLEROSIS
     Dosage: 30 UG; QW; IM
     Route: 030
     Dates: start: 19961014, end: 20071017
  2. ELAVIL [Concomitant]
  3. SYNTHROID [Concomitant]
  4. PROZAC [Concomitant]
  5. MICRO-K [Concomitant]
  6. DICLOFENAC SODIUM [Concomitant]
  7. SINEMET [Concomitant]
  8. FOSAMAX [Concomitant]
  9. TRIAMTERENE AND HYDROCHLOROTHIAZIDE [Concomitant]
  10. DOCUSATE [Concomitant]

REACTIONS (6)
  - CONFUSIONAL STATE [None]
  - DRUG HYPERSENSITIVITY [None]
  - FATIGUE [None]
  - HALLUCINATION [None]
  - MEMORY IMPAIRMENT [None]
  - SYNCOPE [None]
